FAERS Safety Report 5324081-6 (Version None)
Quarter: 2007Q2

REPORT INFORMATION
  Report Type: 
  Country: None (occurrence: None)
  Receive Date: 20070514
  Receipt Date: 20070504
  Transmission Date: 20071010
  Serious: Yes (Hospitalization, Other)
  Sender: FDA-Public Use
  Company Number: US-ABBOTT-07P-163-0367618-00

PATIENT
  Sex: Female
  Weight: 79.45 kg

DRUGS (10)
  1. HUMIRA [Suspect]
     Indication: RHEUMATOID ARTHRITIS
     Dosage: SYRINGE
     Route: 058
     Dates: start: 20050101, end: 20070301
  2. HUMIRA [Suspect]
     Route: 058
     Dates: start: 20070301
  3. MELOXICAM [Concomitant]
     Indication: DRUG USE FOR UNKNOWN INDICATION
  4. LEVOTHYROXINE SODIUM [Concomitant]
     Indication: DRUG USE FOR UNKNOWN INDICATION
  5. METHOTREXATE [Concomitant]
     Indication: DRUG USE FOR UNKNOWN INDICATION
  6. FOLIC ACID [Concomitant]
     Indication: DRUG USE FOR UNKNOWN INDICATION
  7. CALCIUM CHLORIDE [Concomitant]
     Indication: DRUG USE FOR UNKNOWN INDICATION
  8. WARFARIN [Concomitant]
     Indication: DRUG USE FOR UNKNOWN INDICATION
  9. VITAMINS [Concomitant]
     Indication: DRUG USE FOR UNKNOWN INDICATION
  10. MUSCLE RELAXER [Concomitant]
     Indication: DRUG USE FOR UNKNOWN INDICATION

REACTIONS (5)
  - BACK PAIN [None]
  - EPISTAXIS [None]
  - INCREASED UPPER AIRWAY SECRETION [None]
  - PHARYNGOLARYNGEAL PAIN [None]
  - RASH [None]
